FAERS Safety Report 19369680 (Version 4)
Quarter: 2021Q2

REPORT INFORMATION
  Report Type: Spontaneous
  Country: NL (occurrence: NL)
  Receive Date: 20210603
  Receipt Date: 20210618
  Transmission Date: 20210717
  Serious: Yes (Life-Threatening, Hospitalization)
  Sender: FDA-Public Use
  Company Number: NL-CELGENEUS-NLD-20210501260

PATIENT
  Age: 64 Year
  Sex: Female

DRUGS (13)
  1. LENALIDOMIDE [Suspect]
     Active Substance: LENALIDOMIDE
     Indication: PLASMA CELL MYELOMA
     Route: 048
     Dates: start: 20210304, end: 20210311
  2. DEXAMETHASONE. [Suspect]
     Active Substance: DEXAMETHASONE
     Indication: PLASMA CELL MYELOMA
     Route: 065
     Dates: start: 20210304, end: 20210311
  3. CARFILZOMIB [Suspect]
     Active Substance: CARFILZOMIB
     Indication: PLASMA CELL MYELOMA
     Dosage: 342 DAILY DOSE
     Route: 065
     Dates: start: 20210401, end: 20210415
  4. ISATUXIMAB [Suspect]
     Active Substance: ISATUXIMAB
     Indication: PLASMA CELL MYELOMA
     Dosage: 1600 DAILY DOSE
     Route: 065
     Dates: start: 20210401, end: 20210415
  5. LENALIDOMIDE [Suspect]
     Active Substance: LENALIDOMIDE
     Dosage: 280 DAILY DOSE
     Route: 048
     Dates: start: 20210518
  6. OXAZEPAM. [Concomitant]
     Active Substance: OXAZEPAM
     Indication: DEPRESSION
     Route: 065
     Dates: start: 20210222, end: 20210420
  7. OXAZEPAM. [Concomitant]
     Active Substance: OXAZEPAM
     Indication: SLEEP APNOEA SYNDROME
  8. CARFILZOMIB [Suspect]
     Active Substance: CARFILZOMIB
     Dosage: 342 DAILY DOSE
     Route: 065
     Dates: start: 20210518
  9. DEXAMETHASONE. [Suspect]
     Active Substance: DEXAMETHASONE
     Dosage: 40 DAILY DOSE
     Route: 065
     Dates: start: 20210401, end: 20210401
  10. ISATUXIMAB [Suspect]
     Active Substance: ISATUXIMAB
     Dosage: 1600 DAILY DOSE
     Route: 065
     Dates: start: 20210518
  11. PREDNISONE. [Suspect]
     Active Substance: PREDNISONE
     Indication: PROPHYLAXIS
     Route: 065
     Dates: start: 20210408, end: 20210414
  12. LENALIDOMIDE [Suspect]
     Active Substance: LENALIDOMIDE
     Dosage: 280 DAILY DOSE
     Route: 048
     Dates: start: 20210408, end: 20210421
  13. DEXAMETHASONE. [Suspect]
     Active Substance: DEXAMETHASONE
     Dosage: 40 DAILY DOSE
     Route: 065
     Dates: start: 20210518

REACTIONS (1)
  - Depression [Recovered/Resolved with Sequelae]

NARRATIVE: CASE EVENT DATE: 20210414
